FAERS Safety Report 14116197 (Version 5)
Quarter: 2018Q2

REPORT INFORMATION
  Report Type: Spontaneous
  Country: US (occurrence: US)
  Receive Date: 20171023
  Receipt Date: 20180622
  Transmission Date: 20180711
  Serious: Yes (Hospitalization)
  Sender: FDA-Public Use
  Company Number: US-ACTELION-A-US2017-161124

PATIENT
  Age: 66 Year
  Sex: Female

DRUGS (8)
  1. OPSUMIT [Suspect]
     Active Substance: MACITENTAN
     Indication: PULMONARY ARTERIAL HYPERTENSION
     Dosage: 10 MG, QD
     Route: 048
     Dates: start: 20170726
  2. ADEMPAS [Suspect]
     Active Substance: RIOCIGUAT
     Indication: PRODUCT USED FOR UNKNOWN INDICATION
     Dosage: 2 MG, TID
     Route: 048
  3. ADEMPAS [Suspect]
     Active Substance: RIOCIGUAT
     Dosage: 1.5 MG, TID
     Route: 048
  4. FUROSEMIDE. [Concomitant]
     Active Substance: FUROSEMIDE
     Dosage: UNK, BID
  5. ALBUTEROL. [Concomitant]
     Active Substance: ALBUTEROL
  6. SYMBICORT [Concomitant]
     Active Substance: BUDESONIDE\FORMOTEROL FUMARATE DIHYDRATE
  7. ALLOPURINOL. [Concomitant]
     Active Substance: ALLOPURINOL
  8. COREG [Concomitant]
     Active Substance: CARVEDILOL

REACTIONS (4)
  - Blood pressure decreased [Unknown]
  - Oedema [Unknown]
  - Fluid retention [Recovered/Resolved]
  - Dyspnoea [Unknown]
